FAERS Safety Report 10799085 (Version 1)
Quarter: 2015Q1

REPORT INFORMATION
  Report Type: Spontaneous
  Country: US (occurrence: US)
  Receive Date: 20150216
  Receipt Date: 20150216
  Transmission Date: 20150721
  Serious: No
  Sender: FDA-Public Use
  Company Number: US-ALLERGAN-1404014US

PATIENT
  Sex: Female

DRUGS (2)
  1. TRIGLYCERIDE MEDICINE [Concomitant]
     Indication: BLOOD TRIGLYCERIDES INCREASED
     Dosage: UNK
     Route: 048
  2. RESTASIS [Suspect]
     Active Substance: CYCLOSPORINE
     Indication: DRY EYE
     Dosage: 2 GTT, BID
     Route: 047
     Dates: start: 201312, end: 20140220

REACTIONS (4)
  - Eye pruritus [Recovering/Resolving]
  - Eye pain [Recovering/Resolving]
  - Dry eye [Unknown]
  - Eyelid oedema [Recovering/Resolving]
